FAERS Safety Report 15126975 (Version 2)
Quarter: 2018Q4

REPORT INFORMATION
  Report Type: Spontaneous
  Country: US (occurrence: US)
  Receive Date: 20180710
  Receipt Date: 20181120
  Transmission Date: 20190204
  Serious: Yes (Other)
  Sender: FDA-Public Use
  Company Number: US-SA-2017SA248769

PATIENT
  Age: 64 Year
  Sex: Female
  Weight: 107.95 kg

DRUGS (30)
  1. POTASSIUM [Concomitant]
     Active Substance: POTASSIUM
  2. ASPIRIN [ACETYLSALICYLIC ACID] [Concomitant]
     Active Substance: ASPIRIN
  3. ACETAMINOPHEN;HYDROCODONE [Concomitant]
  4. VITAMIN D3 [Concomitant]
     Active Substance: CHOLECALCIFEROL
     Dosage: UNK
     Dates: start: 2003
  5. COENZYME Q10 [Concomitant]
     Active Substance: UBIDECARENONE
  6. FOLIC ACID. [Concomitant]
     Active Substance: FOLIC ACID
  7. MOMETASONE FUROATE. [Concomitant]
     Active Substance: MOMETASONE FUROATE
  8. HYDROCODONE/PARACETAMOL [Concomitant]
     Active Substance: ACETAMINOPHEN\HYDROCODONE BITARTRATE
  9. METFORMIN [Concomitant]
     Active Substance: METFORMIN HYDROCHLORIDE
     Dosage: UNK
     Dates: start: 2003
  10. TAXOL [Concomitant]
     Active Substance: PACLITAXEL
  11. ULTRAM [TRAMADOL HYDROCHLORIDE] [Concomitant]
  12. LISINOPRIL HCTZ [Concomitant]
     Active Substance: HYDROCHLOROTHIAZIDE\LISINOPRIL
     Dosage: UNK
     Dates: start: 2003
  13. TAXOTERE [Suspect]
     Active Substance: DOCETAXEL
     Dosage: 160 MG, Q3W
     Route: 042
     Dates: start: 20101124, end: 20101124
  14. GABAPENTIN. [Concomitant]
     Active Substance: GABAPENTIN
  15. AMBIEN [Concomitant]
     Active Substance: ZOLPIDEM TARTRATE
  16. AROMASIN [Concomitant]
     Active Substance: EXEMESTANE
     Dosage: UNK
     Route: 065
  17. ZOSTER (ACYCLOVIR) [Concomitant]
     Active Substance: ACYCLOVIR
  18. KRILL OIL [Concomitant]
     Active Substance: DIETARY SUPPLEMENT
     Dosage: UNK
     Dates: start: 2003
  19. VOLTAREN [DICLOFENAC] [Concomitant]
     Active Substance: DICLOFENAC SODIUM
  20. HYDROCHLOROTHIAZIDE. [Concomitant]
     Active Substance: HYDROCHLOROTHIAZIDE
  21. MAGNESIUM OXIDE. [Concomitant]
     Active Substance: MAGNESIUM OXIDE
  22. ABRAXANE [Concomitant]
     Active Substance: PACLITAXEL
     Dosage: UNK
  23. TAXOTERE [Suspect]
     Active Substance: DOCETAXEL
     Indication: BREAST CANCER FEMALE
     Dosage: 160 MG, Q3W
     Route: 042
     Dates: start: 20100811, end: 20100811
  24. FERROUS SULFATE. [Concomitant]
     Active Substance: FERROUS SULFATE
  25. NEOSAR [Concomitant]
     Active Substance: CYCLOPHOSPHAMIDE
  26. FEMARA [Concomitant]
     Active Substance: LETROZOLE
     Dosage: UNK
  27. AMITRIPTYLINE [Concomitant]
     Active Substance: AMITRIPTYLINE
     Dosage: UNK
     Dates: start: 2003
  28. ATIVAN [Concomitant]
     Active Substance: LORAZEPAM
  29. FISH OIL [Concomitant]
     Active Substance: FISH OIL
  30. GLUCOTROL [Concomitant]
     Active Substance: GLIPIZIDE
     Dosage: UNK
     Dates: start: 2003

REACTIONS (2)
  - Alopecia [Recovering/Resolving]
  - Psychological trauma [Unknown]

NARRATIVE: CASE EVENT DATE: 20110524
